FAERS Safety Report 7228025-1 (Version None)
Quarter: 2011Q1

REPORT INFORMATION
  Report Type: 
  Country: None (occurrence: None)
  Receive Date: 20110114
  Receipt Date: 20101122
  Transmission Date: 20110831
  Serious: Yes (Other)
  Sender: FDA-Public Use
  Company Number: US-PURDUE-USA-2010-0056235

PATIENT
  Sex: Female

DRUGS (1)
  1. OXYCONTIN [Suspect]
     Indication: PAIN MANAGEMENT
     Dosage: UNK
     Dates: start: 20000501

REACTIONS (9)
  - ANXIETY [None]
  - PANIC ATTACK [None]
  - SEDATION [None]
  - HEPATIC FAILURE [None]
  - DRUG REHABILITATION [None]
  - EUPHORIC MOOD [None]
  - DEPRESSION [None]
  - IMPAIRED WORK ABILITY [None]
  - HYPOREFLEXIA [None]
